FAERS Safety Report 21963274 (Version 1)
Quarter: 2023Q1

REPORT INFORMATION
  Report Type: Spontaneous
  Country: FR (occurrence: FR)
  Receive Date: 20230207
  Receipt Date: 20230207
  Transmission Date: 20230418
  Serious: Yes (Hospitalization)
  Sender: FDA-Public Use
  Company Number: None

PATIENT
  Age: 92 Year
  Sex: Female

DRUGS (4)
  1. FUROSEMIDE [Suspect]
     Active Substance: FUROSEMIDE
     Indication: Oedema
     Dosage: 80 MILLIGRAM, QD (40 MG TWICE DAILY)
     Route: 048
     Dates: start: 20221222, end: 20230104
  2. ELIQUIS [Suspect]
     Active Substance: APIXABAN
     Indication: Vascular disorder prophylaxis
     Dosage: 5 MILLIGRAM, QD (2.5 MG TWICE DAILY)
     Route: 048
     Dates: start: 20221227, end: 20230105
  3. AUGMENTIN [Concomitant]
     Active Substance: AMOXICILLIN\CLAVULANATE POTASSIUM
     Dosage: 3 GRAM, QD 3 SACHETS PER DAY
     Route: 048
     Dates: start: 20221223, end: 20221230
  4. POTASSIUM CHLORIDE [Concomitant]
     Active Substance: POTASSIUM CHLORIDE
     Indication: Hypokalaemia
     Dosage: 1200 MILLIGRAM BID (600 MG NOON AND EVENING)
     Route: 048
     Dates: start: 20221227, end: 20230102

REACTIONS (1)
  - Rash maculo-papular [Not Recovered/Not Resolved]

NARRATIVE: CASE EVENT DATE: 20230101
